FAERS Safety Report 8824655 (Version 1)
Quarter: 2012Q4

REPORT INFORMATION
  Report Type: 
  Country: BR (occurrence: BR)
  Receive Date: 20121004
  Receipt Date: 20121004
  Transmission Date: 20130627
  Serious: Yes (Hospitalization)
  Sender: FDA-Public Use
  Company Number: PHHY2011BR100793

PATIENT
  Age: 81 Year
  Sex: Male
  Weight: 68 kg

DRUGS (10)
  1. EXELON PATCH [Suspect]
     Indication: DEMENTIA ALZHEIMER^S TYPE
     Dosage: Patch 15 (cm2), 1 patch a day
     Route: 062
  2. EXELON PATCH [Suspect]
     Dosage: Patch 5 (cm2), 1 patch a day
     Route: 062
  3. EXELON PATCH [Suspect]
     Dosage: Patch 10 (cm2), 1 patch a day
     Route: 062
  4. EXELON PATCH [Suspect]
     Dosage: Patch 15 (cm2), 1 patch a day
     Route: 062
  5. AAS [Concomitant]
     Indication: ISCHAEMIA
     Dosage: 2 tablets after lunch
     Route: 048
  6. MEMANTINE [Concomitant]
     Indication: DEMENTIA ALZHEIMER^S TYPE
     Dosage: 1 tablet in the morning and in the afternoon
     Route: 048
     Dates: start: 2007
  7. CILOSTAZOL [Concomitant]
     Indication: CEREBROVASCULAR DISORDER
     Dosage: 50 mg, day
     Route: 048
  8. SERTRALINE [Concomitant]
     Indication: APATHY
     Dosage: 50 mg,daily
     Route: 048
  9. LISINOPRIL [Concomitant]
     Indication: HYPERTENSION
     Dosage: 1 tablet of 10mg in the morning and 1 tablet of 5mg at night
     Route: 048
  10. PRISTIQ [Concomitant]
     Indication: APATHY
     Dosage: half a tablet in the morning
     Route: 048
     Dates: start: 201107

REACTIONS (8)
  - Cerebral ischaemia [Not Recovered/Not Resolved]
  - Dysgraphia [Not Recovered/Not Resolved]
  - Apathy [Not Recovered/Not Resolved]
  - Hypertension [Recovered/Resolved]
  - Dementia Alzheimer^s type [Not Recovered/Not Resolved]
  - Hyperhidrosis [Not Recovered/Not Resolved]
  - Amnesia [Not Recovered/Not Resolved]
  - Wrong technique in drug usage process [Unknown]
